FAERS Safety Report 21756113 (Version 5)
Quarter: 2023Q1

REPORT INFORMATION
  Report Type: Spontaneous
  Country: CA (occurrence: CA)
  Receive Date: 20221220
  Receipt Date: 20230329
  Transmission Date: 20230418
  Serious: Yes (Other)
  Sender: FDA-Public Use
  Company Number: CA-PFIZER INC-202201328410

PATIENT
  Age: 45 Year
  Sex: Female

DRUGS (4)
  1. ABRILADA [Suspect]
     Active Substance: ADALIMUMAB-AFZB
     Dosage: 160 MG, THEN 160 MG NEXT WEEK, THEN 80 MG THE WEEK AFTER, AND THEN 40 MG WEEKLY.
     Route: 058
     Dates: start: 20210325
  2. ABRILADA [Suspect]
     Active Substance: ADALIMUMAB-AFZB
     Dosage: 160 MG, THEN 160 MG NEXT WEEK, THEN 80 MG THE WEEK AFTER, AND THEN 40 MG WEEKLY.
     Route: 058
     Dates: start: 20221129
  3. ABRILADA [Suspect]
     Active Substance: ADALIMUMAB-AFZB
     Dosage: 160 MG, THEN 160 MG NEXT WEEK, THEN 80 MG THE WEEK AFTER, AND THEN 40 MG WEEKLY.
     Route: 058
     Dates: start: 20221201
  4. METHOTREXATE SODIUM [Concomitant]
     Active Substance: METHOTREXATE SODIUM
     Dosage: 15 MG, WEEKLY
     Route: 065
     Dates: start: 202212

REACTIONS (12)
  - Sinusitis bacterial [Not Recovered/Not Resolved]
  - Fistula [Unknown]
  - Anal abscess [Not Recovered/Not Resolved]
  - Pain [Recovering/Resolving]
  - Abscess [Not Recovered/Not Resolved]
  - Defaecation urgency [Recovering/Resolving]
  - Off label use [Unknown]
  - Incorrect dose administered [Unknown]
  - Device leakage [Unknown]
  - Accidental exposure to product [Unknown]
  - Exposure via skin contact [Unknown]
  - Device malfunction [Unknown]

NARRATIVE: CASE EVENT DATE: 20220101
